FAERS Safety Report 16794203 (Version 1)
Quarter: 2019Q3

REPORT INFORMATION
  Report Type: Report from Study
  Country: None (occurrence: BE)
  Receive Date: 20190911
  Receipt Date: 20190911
  Transmission Date: 20191005
  Serious: Yes (Death, Hospitalization)
  Sender: FDA-Public Use
  Company Number: BE-ABBVIE-19S-013-2658480-00

PATIENT
  Age: 82 Year
  Sex: Male

DRUGS (11)
  1. DUODOPA [Suspect]
     Active Substance: CARBIDOPA\LEVODOPA
     Dosage: MD=5ML; CD=2.3ML/HR DURING 16HRS; ED=2ML
     Route: 050
     Dates: start: 20171031, end: 20190617
  2. DUODOPA [Suspect]
     Active Substance: CARBIDOPA\LEVODOPA
     Dosage: MD=5ML, CD=2.7ML/HR DURING 16HRS, ED=2ML
     Route: 050
     Dates: start: 20190711
  3. DUODOPA [Suspect]
     Active Substance: CARBIDOPA\LEVODOPA
     Dosage: MD=5ML, CD=2.5ML/HR DURING 16HRS, ED=2ML
     Route: 050
     Dates: start: 20190617, end: 20190703
  4. DUODOPA [Suspect]
     Active Substance: CARBIDOPA\LEVODOPA
     Dosage: MD=7ML; CD=3.8ML/HR DURING 16HRS; ED=2ML
     Route: 050
     Dates: start: 20141002, end: 20141008
  5. DUODOPA [Suspect]
     Active Substance: CARBIDOPA\LEVODOPA
     Dosage: MD=5ML, CD=2.6ML/HR DURING 16HRS, ED=2ML
     Route: 050
     Dates: start: 20190703, end: 20190711
  6. STALEVO 100 [Concomitant]
     Dosage: FORM STRENGTH: 100MG/25MG/200MG, RESCUE MEDICATION, 4 TIMES A DAY
  7. DUODOPA [Suspect]
     Active Substance: CARBIDOPA\LEVODOPA
     Indication: PARKINSON^S DISEASE
     Dosage: UNKNOWN DOSAGES
     Route: 050
     Dates: start: 20140929, end: 20141002
  8. SIMVASTATINE [Concomitant]
     Active Substance: SIMVASTATIN
     Indication: PRODUCT USED FOR UNKNOWN INDICATION
  9. FLUDROCORTISONE [Concomitant]
     Active Substance: FLUDROCORTISONE
     Indication: PRODUCT USED FOR UNKNOWN INDICATION
  10. DUODOPA [Suspect]
     Active Substance: CARBIDOPA\LEVODOPA
     Dosage: DOSES CONTINUOUSLY MONITORED AND ADAPTED
     Route: 050
     Dates: start: 20141008, end: 20171031
  11. STALEVO 100 [Concomitant]
     Indication: PARKINSON^S DISEASE
     Dosage: FORM STRENGTH: 100MG/25MG/200MG
     Route: 048

REACTIONS (4)
  - Death [Fatal]
  - Salivary hypersecretion [Unknown]
  - Dysphagia [Not Recovered/Not Resolved]
  - Device breakage [Unknown]

NARRATIVE: CASE EVENT DATE: 20190905
